FAERS Safety Report 25288369 (Version 1)
Quarter: 2025Q2

REPORT INFORMATION
  Report Type: Spontaneous
  Country: US (occurrence: None)
  Receive Date: 20250508
  Receipt Date: 20250508
  Transmission Date: 20250716
  Serious: No
  Sender: FDA-CTU
  Company Number: None

PATIENT
  Age: 80 Year
  Sex: Female
  Weight: 72.57 kg

DRUGS (13)
  1. DULOXETINE HYDROCHLORIDE [Suspect]
     Active Substance: DULOXETINE HYDROCHLORIDE
     Route: 048
     Dates: start: 20250210, end: 20250226
  2. ATORVASTATIN [Concomitant]
     Active Substance: ATORVASTATIN
  3. FOLIC ACID [Concomitant]
     Active Substance: FOLIC ACID
  4. MEMANTINE [Concomitant]
     Active Substance: MEMANTINE
  5. PANTOPRAZOLE [Concomitant]
     Active Substance: PANTOPRAZOLE
  6. ASPIRIN [Concomitant]
     Active Substance: ASPIRIN
  7. IRON [Concomitant]
     Active Substance: IRON
  8. VITAMIN B1 [Concomitant]
     Active Substance: THIAMINE HYDROCHLORIDE
  9. VITAMIN B12 [Concomitant]
     Active Substance: CYANOCOBALAMIN
  10. VITAMIN C [Concomitant]
     Active Substance: ASCORBIC ACID
  11. HAIR SKIN AND NAILS [Concomitant]
  12. VITAMIN D NOS [Concomitant]
     Active Substance: CHOLECALCIFEROL\ERGOCALCIFEROL
  13. MULTI-FEMALE [Concomitant]

REACTIONS (1)
  - Anxiety [None]
